FAERS Safety Report 17259696 (Version 33)
Quarter: 2021Q3

REPORT INFORMATION
  Report Type: Report from Study
  Country: CL (occurrence: CL)
  Receive Date: 20200110
  Receipt Date: 20210904
  Transmission Date: 20211014
  Serious: Yes (Life-Threatening, Hospitalization, Disabling, Other)
  Sender: FDA-Public Use
  Company Number: NVSC2018CL000583

PATIENT
  Age: 62 Year
  Sex: Female
  Weight: 71 kg

DRUGS (40)
  1. KISQALI [Suspect]
     Active Substance: RIBOCICLIB
     Dosage: 600 MG, QD
     Route: 048
     Dates: start: 20180612
  2. KISQALI [Suspect]
     Active Substance: RIBOCICLIB
     Indication: BREAST CANCER
     Dosage: 600 MG, QD
     Route: 048
     Dates: start: 201804
  3. KISQALI [Suspect]
     Active Substance: RIBOCICLIB
     Dosage: 600 MG, QD
     Route: 048
     Dates: start: 20180712
  4. KISQALI [Suspect]
     Active Substance: RIBOCICLIB
     Dosage: 600 MG, QD
     Route: 048
  5. KISQALI [Suspect]
     Active Substance: RIBOCICLIB
     Dosage: 600 MG, QD
     Route: 048
     Dates: start: 20190712
  6. ATORVASTATIN [Concomitant]
     Active Substance: ATORVASTATIN
     Indication: HYPERCHOLESTEROLAEMIA
     Dosage: 10 MG, QD
     Route: 048
     Dates: end: 20190114
  7. KISQALI [Suspect]
     Active Substance: RIBOCICLIB
     Dosage: 600 MG, QD
     Route: 048
     Dates: start: 20180715
  8. KISQALI [Suspect]
     Active Substance: RIBOCICLIB
     Dosage: 600 MG, QD
     Route: 048
  9. KISQALI [Suspect]
     Active Substance: RIBOCICLIB
     Dosage: UNK
     Route: 048
  10. KISQALI [Suspect]
     Active Substance: RIBOCICLIB
     Dosage: UNK
     Route: 065
  11. KISQALI [Suspect]
     Active Substance: RIBOCICLIB
     Dosage: 600 MG, QD
     Route: 048
  12. GLICENEX [Suspect]
     Active Substance: METFORMIN HYDROCHLORIDE
     Indication: INSULIN RESISTANCE
     Dosage: 750 MG, UNK
     Route: 048
     Dates: end: 20190124
  13. LANSOPRAZOLE. [Concomitant]
     Active Substance: LANSOPRAZOLE
     Indication: PRODUCT USED FOR UNKNOWN INDICATION
     Dosage: UNK (SINCE 17 YEARS AGO)
     Route: 065
  14. KISQALI [Suspect]
     Active Substance: RIBOCICLIB
     Dosage: 600 MG, QD
     Route: 048
     Dates: start: 20180907, end: 20181025
  15. KISQALI [Suspect]
     Active Substance: RIBOCICLIB
     Dosage: 600 MG, QD
     Route: 048
  16. ESCITALOPRAM [Suspect]
     Active Substance: ESCITALOPRAM OXALATE
     Indication: PRODUCT USED FOR UNKNOWN INDICATION
     Dosage: 5 MG, Q24H
     Route: 065
  17. CENTRUM [Concomitant]
     Active Substance: VITAMINS
     Indication: PRODUCT USED FOR UNKNOWN INDICATION
     Dosage: UNK
     Route: 065
  18. KISQALI [Suspect]
     Active Substance: RIBOCICLIB
     Dosage: 600 MG, QD
     Route: 048
  19. KISQALI [Suspect]
     Active Substance: RIBOCICLIB
     Dosage: 600 MG, QD (DAILY AT 9 AM)
     Route: 048
     Dates: start: 20180906
  20. KISQALI [Suspect]
     Active Substance: RIBOCICLIB
     Dosage: 600 MG, QD
     Route: 048
  21. FEMARA [Suspect]
     Active Substance: LETROZOLE
     Indication: BREAST CANCER
     Dosage: 2.5 MG, QD
     Route: 048
     Dates: start: 201904
  22. ONDANSETRON [Suspect]
     Active Substance: ONDANSETRON
     Indication: PRODUCT USED FOR UNKNOWN INDICATION
     Route: 065
  23. METFORMIN [Concomitant]
     Active Substance: METFORMIN HYDROCHLORIDE
     Indication: PRODUCT USED FOR UNKNOWN INDICATION
     Dosage: 750 MG, QD
     Route: 065
  24. METFORMIN [Concomitant]
     Active Substance: METFORMIN HYDROCHLORIDE
     Dosage: 850 MG, QD
     Route: 065
  25. KISQALI [Suspect]
     Active Substance: RIBOCICLIB
     Dosage: 600 MG, QD
     Route: 048
     Dates: start: 20180712
  26. KISQALI [Suspect]
     Active Substance: RIBOCICLIB
     Dosage: 600 MG, QD
     Route: 048
     Dates: start: 20180808, end: 20180828
  27. KISQALI [Suspect]
     Active Substance: RIBOCICLIB
     Dosage: 600 MG, QD
     Route: 048
  28. FEMARA [Suspect]
     Active Substance: LETROZOLE
     Dosage: UNK
     Route: 065
     Dates: start: 20191201
  29. CALCIUM [Concomitant]
     Active Substance: CALCIUM
     Indication: PRODUCT USED FOR UNKNOWN INDICATION
     Dosage: UNK
     Route: 065
  30. PNEUMOCOCCAL VACCINE POLYVALENT NOS [Concomitant]
     Active Substance: PNEUMOCOCCAL VACCINE POLYVALENT
     Indication: PRODUCT USED FOR UNKNOWN INDICATION
     Dosage: UNK
     Route: 065
  31. KISQALI [Suspect]
     Active Substance: RIBOCICLIB
     Dosage: 600 MG, QD
     Route: 048
     Dates: end: 20190926
  32. KISQALI [Suspect]
     Active Substance: RIBOCICLIB
     Dosage: 600 MG, QD
     Route: 048
     Dates: start: 20180712
  33. KISQALI [Suspect]
     Active Substance: RIBOCICLIB
     Dosage: 600 MG, QD (EXPIRY DATE ALSO REPORTED AS: FEB 2022),
     Route: 048
     Dates: start: 20180712
  34. FEMARA [Suspect]
     Active Substance: LETROZOLE
     Dosage: UNK
     Route: 065
  35. GLICENEX [Suspect]
     Active Substance: METFORMIN HYDROCHLORIDE
     Indication: DIABETES MELLITUS
  36. VITAMIN D [Concomitant]
     Active Substance: VITAMIN D NOS
     Indication: PRODUCT USED FOR UNKNOWN INDICATION
     Dosage: UNK
     Route: 065
  37. KISQALI [Suspect]
     Active Substance: RIBOCICLIB
     Dosage: 600 MG, QD
     Route: 048
     Dates: start: 20180712
  38. KISQALI [Suspect]
     Active Substance: RIBOCICLIB
     Dosage: 600 MG, QD
     Route: 048
  39. ANASTROZOLE. [Concomitant]
     Active Substance: ANASTROZOLE
     Indication: PRODUCT USED FOR UNKNOWN INDICATION
     Dosage: UNK
     Route: 065
  40. CLONEX [Concomitant]
     Indication: PRODUCT USED FOR UNKNOWN INDICATION
     Dosage: UNK
     Route: 065

REACTIONS (144)
  - Blood creatinine increased [Unknown]
  - Bradycardia [Unknown]
  - Malaise [Unknown]
  - Haematocrit decreased [Unknown]
  - Haemoglobin decreased [Unknown]
  - Depression [Unknown]
  - Nasal ulcer [Unknown]
  - Gingival erythema [Recovering/Resolving]
  - Nasal injury [Not Recovered/Not Resolved]
  - Ageusia [Not Recovered/Not Resolved]
  - Musculoskeletal chest pain [Unknown]
  - General physical health deterioration [Unknown]
  - Full blood count decreased [Unknown]
  - Depressed mood [Recovering/Resolving]
  - Poikilocytosis [Unknown]
  - Red cell distribution width increased [Unknown]
  - Blood glucose increased [Unknown]
  - Vision blurred [Recovering/Resolving]
  - Hypersensitivity [Unknown]
  - Catheter site pain [Unknown]
  - Colitis [Unknown]
  - Tension headache [Unknown]
  - Epilepsy [Unknown]
  - Diarrhoea [Unknown]
  - Headache [Unknown]
  - Thrombosis [Unknown]
  - Eye swelling [Not Recovered/Not Resolved]
  - Food intolerance [Not Recovered/Not Resolved]
  - Gait disturbance [Recovering/Resolving]
  - Fluid retention [Unknown]
  - Memory impairment [Unknown]
  - Yawning [Unknown]
  - Red blood cell sedimentation rate increased [Unknown]
  - Arthritis [Unknown]
  - Viral diarrhoea [Recovered/Resolved]
  - Oesophagitis [Unknown]
  - Diplopia [Not Recovered/Not Resolved]
  - Haemoptysis [Unknown]
  - Blood pressure increased [Unknown]
  - Migraine [Unknown]
  - Hypertension [Unknown]
  - Foot fracture [Unknown]
  - International normalised ratio abnormal [Unknown]
  - White blood cell count decreased [Recovered/Resolved]
  - Abnormal behaviour [Unknown]
  - Epistaxis [Unknown]
  - Electric shock sensation [Unknown]
  - Back pain [Recovered/Resolved]
  - Fatigue [Unknown]
  - Weight decreased [Unknown]
  - Blood sodium increased [Unknown]
  - Aversion [Not Recovered/Not Resolved]
  - Polychromasia [Unknown]
  - Elliptocytosis [Unknown]
  - Limb deformity [Unknown]
  - Pyrexia [Unknown]
  - Red blood cell count decreased [Unknown]
  - Dry skin [Not Recovered/Not Resolved]
  - Herpes virus infection [Unknown]
  - Confusional state [Unknown]
  - Mobility decreased [Not Recovered/Not Resolved]
  - Hypotension [Unknown]
  - Amnesia [Not Recovered/Not Resolved]
  - Nausea [Unknown]
  - Blood potassium abnormal [Unknown]
  - Wound [Unknown]
  - Choking [Unknown]
  - Aphthous ulcer [Recovering/Resolving]
  - Visual impairment [Recovered/Resolved]
  - Influenza [Unknown]
  - Fat tissue increased [Unknown]
  - Headache [Recovered/Resolved]
  - Eye disorder [Unknown]
  - Anisocytosis [Unknown]
  - Atrioventricular block first degree [Unknown]
  - Discomfort [Recovered/Resolved]
  - Oral herpes [Unknown]
  - Decreased immune responsiveness [Recovering/Resolving]
  - Visual impairment [Unknown]
  - Pruritus [Recovering/Resolving]
  - Chills [Unknown]
  - Gastrooesophageal reflux disease [Unknown]
  - Pain in extremity [Unknown]
  - Ankle fracture [Unknown]
  - Emotional distress [Unknown]
  - Skin discolouration [Unknown]
  - Loss of consciousness [Unknown]
  - Metastases to lung [Unknown]
  - Sarcoma [Unknown]
  - Tinnitus [Not Recovered/Not Resolved]
  - Hypoglycaemia [Unknown]
  - Cough [Unknown]
  - Pain [Recovered/Resolved]
  - Dry eye [Recovering/Resolving]
  - Eye pain [Unknown]
  - Neoplasm [Unknown]
  - Gait inability [Not Recovered/Not Resolved]
  - Anxiety [Unknown]
  - Vomiting [Not Recovered/Not Resolved]
  - Insomnia [Not Recovered/Not Resolved]
  - Ligament sprain [Recovered/Resolved]
  - Contusion [Unknown]
  - Asphyxia [Unknown]
  - Swelling [Unknown]
  - Ill-defined disorder [Unknown]
  - Thyroid mass [Unknown]
  - Agitation [Unknown]
  - Vision blurred [Not Recovered/Not Resolved]
  - Feeling abnormal [Not Recovered/Not Resolved]
  - Fall [Not Recovered/Not Resolved]
  - C-reactive protein abnormal [Unknown]
  - Dizziness [Recovering/Resolving]
  - Pain [Unknown]
  - Petit mal epilepsy [Unknown]
  - Neutrophil count decreased [Unknown]
  - Pulmonary pain [Unknown]
  - Weight increased [Not Recovered/Not Resolved]
  - Scab [Unknown]
  - Dysgeusia [Not Recovered/Not Resolved]
  - Eyelid margin crusting [Unknown]
  - Nervousness [Unknown]
  - Macrocytosis [Unknown]
  - Mean cell volume increased [Unknown]
  - Rouleaux formation [Unknown]
  - Gingival disorder [Unknown]
  - Stress [Unknown]
  - Impaired healing [Unknown]
  - Nasopharyngitis [Unknown]
  - Alopecia [Not Recovered/Not Resolved]
  - Blood alkaline phosphatase increased [Unknown]
  - Blood urea abnormal [Unknown]
  - Blood cholesterol abnormal [Unknown]
  - Myopia [Unknown]
  - Keratitis [Recovering/Resolving]
  - Immunodeficiency [Unknown]
  - Noninfective gingivitis [Recovered/Resolved]
  - Morton^s neuralgia [Recovering/Resolving]
  - Productive cough [Unknown]
  - Abdominal discomfort [Unknown]
  - Diarrhoea [Recovered/Resolved]
  - Gastrointestinal disorder [Recovering/Resolving]
  - Lymphocyte count decreased [Unknown]
  - High density lipoprotein abnormal [Unknown]
  - Pharyngitis [Unknown]

NARRATIVE: CASE EVENT DATE: 20180612
